FAERS Safety Report 18862404 (Version 11)
Quarter: 2024Q1

REPORT INFORMATION
  Report Type: Report from Study
  Country: US (occurrence: US)
  Receive Date: 20210208
  Receipt Date: 20240213
  Transmission Date: 20240410
  Serious: Yes (Hospitalization, Other)
  Sender: FDA-Public Use
  Company Number: US-SUN PHARMACEUTICAL INDUSTRIES LTD-2021R1-279424

PATIENT
  Age: 63 Year
  Sex: Female

DRUGS (2)
  1. BOSENTAN [Suspect]
     Active Substance: BOSENTAN
     Indication: Pulmonary hypertension
     Dosage: 62.5 MILLIGRAM, BID
     Route: 048
     Dates: start: 202010
  2. BOSENTAN [Suspect]
     Active Substance: BOSENTAN
     Dosage: 62.5 MILLIGRAM, DAILY
     Route: 048
     Dates: start: 202010

REACTIONS (6)
  - Hypervolaemia [Unknown]
  - Dyspnoea [Unknown]
  - Urinary tract infection [Unknown]
  - Product dose omission issue [Unknown]
  - Treatment noncompliance [Unknown]
  - Infection [Unknown]

NARRATIVE: CASE EVENT DATE: 20220218
